FAERS Safety Report 26111719 (Version 1)
Quarter: 2025Q4

REPORT INFORMATION
  Report Type: Spontaneous
  Country: JP (occurrence: JP)
  Receive Date: 20251202
  Receipt Date: 20251202
  Transmission Date: 20260117
  Serious: Yes (Hospitalization, Other)
  Sender: BRISTOL-MYERS SQUIBB COMPANY
  Company Number: JP-BRISTOL-MYERS SQUIBB COMPANY-2025-161371

PATIENT
  Age: 8 Decade
  Weight: 70 kg

DRUGS (3)
  1. REBLOZYL [Suspect]
     Active Substance: LUSPATERCEPT-AAMT
     Indication: Myelodysplastic syndrome
     Dosage: REBLOZYL 1ST CYCLE?STRENGTHS: 25 MG AND 75 MG
     Route: 058
  2. REBLOZYL [Suspect]
     Active Substance: LUSPATERCEPT-AAMT
     Dosage: REBLOZYL 5TH CYCLE
     Route: 058
  3. REBLOZYL [Suspect]
     Active Substance: LUSPATERCEPT-AAMT
     Dosage: REBLOZYL 3RD CYCLE
     Route: 058

REACTIONS (1)
  - Cardiac failure [Recovering/Resolving]

NARRATIVE: CASE EVENT DATE: 20251101
